FAERS Safety Report 6960746-8 (Version None)
Quarter: 2010Q3

REPORT INFORMATION
  Report Type: 
  Country: None (occurrence: None)
  Receive Date: 20100901
  Receipt Date: 20100823
  Transmission Date: 20110219
  Serious: Yes (Other)
  Sender: FDA-Public Use
  Company Number: US-PFIZER INC-2010106476

PATIENT
  Sex: Female

DRUGS (1)
  1. DEPO-PROVERA [Suspect]
     Dosage: EVERY 3 MONTHS
     Route: 030
     Dates: start: 20090723, end: 20100726

REACTIONS (2)
  - CONDITION AGGRAVATED [None]
  - OSTEOPENIA [None]
